FAERS Safety Report 10723843 (Version 1)
Quarter: 2015Q1

REPORT INFORMATION
  Report Type: Spontaneous
  Country: SA (occurrence: SA)
  Receive Date: 20150120
  Receipt Date: 20150120
  Transmission Date: 20150721
  Serious: Yes (Death)
  Sender: FDA-Public Use
  Company Number: SA-CIPLA LTD.-2015SA00356

PATIENT

DRUGS (14)
  1. CISPLATIN. [Suspect]
     Active Substance: CISPLATIN
     Indication: PINEALOBLASTOMA
  2. CYCLOPHOSPHAMIDE. [Suspect]
     Active Substance: CYCLOPHOSPHAMIDE
     Indication: PINEALOBLASTOMA
  3. ISOTRETINOIN [Suspect]
     Active Substance: ISOTRETINOIN
     Indication: PINEALOBLASTOMA
     Dosage: 2 CYCLES
  4. PIPERACILLIN/TAZOBACTAM [Concomitant]
     Active Substance: PIPERACILLIN SODIUM\TAZOBACTAM SODIUM
     Indication: ANTIBIOTIC PROPHYLAXIS
  5. ETOPOSIDE. [Suspect]
     Active Substance: ETOPOSIDE
     Indication: PINEALOBLASTOMA
  6. LOCAL RADIOTHERAPY [Suspect]
     Active Substance: RADIATION THERAPY
     Indication: PINEALOBLASTOMA
     Dosage: 19.8 GY
  7. VINCRISTINE [Suspect]
     Active Substance: VINCRISTINE
     Indication: PINEALOBLASTOMA
  8. GRANULOCYTE COLONY STIMULATING FACTOR [Concomitant]
     Active Substance: GRANULOCYTE COLONY-STIMULATING FACTOR NOS
  9. ACYCLOVIR. [Concomitant]
     Active Substance: ACYCLOVIR
     Indication: PROPHYLAXIS
  10. CARBOPLATIN. [Suspect]
     Active Substance: CARBOPLATIN
     Indication: PINEALOBLASTOMA
     Dosage: 17 MG/KG ON DAYS 4 AND 3
  11. FLUCONAZOLE. [Concomitant]
     Active Substance: FLUCONAZOLE
     Indication: PROPHYLAXIS
  12. URSODIOL. [Concomitant]
     Active Substance: URSODIOL
  13. THIOTEPA. [Suspect]
     Active Substance: THIOTEPA
     Indication: PINEALOBLASTOMA
     Dosage: 10 MG/KG ON DAYS 4 AND 3
  14. CRANIOSPINAL IRRADIATION [Suspect]
     Active Substance: RADIATION THERAPY
     Indication: PINEALOBLASTOMA
     Dosage: 36 GY

REACTIONS (1)
  - Neoplasm progression [Fatal]
